FAERS Safety Report 16036646 (Version 1)
Quarter: 2019Q1

REPORT INFORMATION
  Report Type: Spontaneous
  Country: US (occurrence: US)
  Receive Date: 20190305
  Receipt Date: 20190305
  Transmission Date: 20190418
  Serious: No
  Sender: FDA-Public Use
  Company Number: US-IMPAX LABORATORIES, LLC-2018-IPXL-03032

PATIENT
  Age: 75 Year
  Sex: Female

DRUGS (3)
  1. RYTARY [Suspect]
     Active Substance: CARBIDOPA\LEVODOPA
     Indication: PRODUCT USED FOR UNKNOWN INDICATION
     Dosage: 23.75/95 MG, UNK
     Route: 048
  2. RYTARY [Suspect]
     Active Substance: CARBIDOPA\LEVODOPA
     Dosage: 23.75/95 MG, UNK (ONLY AT BEDTIME)
     Route: 048
     Dates: start: 20180911
  3. SINEMET [Concomitant]
     Active Substance: CARBIDOPA\LEVODOPA
     Indication: PRODUCT USED FOR UNKNOWN INDICATION
     Dosage: UNK (DURING DAY TIME)
     Route: 065
     Dates: start: 20180911

REACTIONS (5)
  - Impaired driving ability [Unknown]
  - Tremor [Recovering/Resolving]
  - Muscle tightness [Recovering/Resolving]
  - Feeling abnormal [Recovering/Resolving]
  - Dry mouth [Recovering/Resolving]
